FAERS Safety Report 4541181-9 (Version None)
Quarter: 2004Q4

REPORT INFORMATION
  Report Type: 
  Country: None (occurrence: None)
  Receive Date: 20041227
  Receipt Date: 20041221
  Transmission Date: 20050328
  Serious: Yes (Hospitalization, Other)
  Sender: FDA-Public Use
  Company Number: DEWYE161529OCT04

PATIENT
  Age: 70 Year
  Sex: Male

DRUGS (13)
  1. RAPAMUNE [Suspect]
     Indication: PROPHYLAXIS AGAINST TRANSPLANT REJECTION
     Dosage: SEE IMAGE
     Route: 048
     Dates: start: 20040818, end: 20041027
  2. RAPAMUNE [Suspect]
     Indication: PROPHYLAXIS AGAINST TRANSPLANT REJECTION
     Dosage: SEE IMAGE
     Route: 048
     Dates: start: 20041028
  3. DELIX PLUS (HYDROCHLOROTHIAZIDE/RAMIPRIL) [Concomitant]
  4. METOPROLOL TARTRATE [Concomitant]
  5. GLUCOBAY [Concomitant]
  6. ASPIRIN [Concomitant]
  7. LOCOL (FLUVASTATIN SODIUM) [Concomitant]
  8. ALLOPURINOL [Concomitant]
  9. CORANGIN (ISOSORBIDE MONONITRATE) [Concomitant]
  10. MAGNESIUM (MAGNESIUM) [Concomitant]
  11. PREDNISOLONE [Concomitant]
  12. DIOVAN HCT [Concomitant]
  13. RANITIDINE HCL [Concomitant]

REACTIONS (1)
  - ANGIONEUROTIC OEDEMA [None]
